FAERS Safety Report 7412966-6 (Version None)
Quarter: 2011Q2

REPORT INFORMATION
  Report Type: 
  Country: None (occurrence: None)
  Receive Date: 20110405
  Receipt Date: 20110322
  Transmission Date: 20111010
  Serious: Yes (Death)
  Sender: FDA-Public Use
  Company Number: 2011001367

PATIENT
  Age: 86 Year
  Sex: Female

DRUGS (11)
  1. BISOPROLOL (BISOPROLOL) [Suspect]
     Indication: CARDIAC FAILURE
     Dosage: 5 MG, DAILY, ORAL
     Route: 048
     Dates: start: 20090101, end: 20090107
  2. OMEPRAZOLE [Suspect]
     Indication: GASTROOESOPHAGEAL REFLUX DISEASE
     Dosage: 10 MG, DAILY, ORAL
     Route: 048
     Dates: start: 20090101, end: 20110107
  3. TIMOLOL MALEATE [Suspect]
     Indication: GLAUCOMA
     Dosage: OPHTHALMIC
     Route: 047
     Dates: start: 19900101, end: 20110107
  4. FLUOXETINE [Suspect]
     Indication: DEPRESSION
     Dosage: 20 MG, DAILY, ORAL
     Route: 048
     Dates: start: 20101201, end: 20110107
  5. VALIUM [Suspect]
     Indication: PRODUCT USED FOR UNKNOWN INDICATION
     Dosage: 30 GTT, DAILY, ORAL
     Route: 048
     Dates: start: 19900101, end: 20110107
  6. TARCEVA [Suspect]
     Indication: LUNG NEOPLASM MALIGNANT
     Dosage: 150 MG, DAILY, ORAL
     Route: 048
     Dates: start: 20101203, end: 20110107
  7. KARDEGIC (ACETYLSALICYLATE LYSINE) [Suspect]
     Indication: CARDIAC FAILURE
     Dosage: 75 MG, DAILY, ORAL
     Route: 048
     Dates: start: 20090101, end: 20110107
  8. FUROSEMIDE (FUROSEMIDE) [Suspect]
     Indication: CARDIAC FAILURE
     Dosage: 20 MG, DAILY, ORAL
     Route: 048
     Dates: start: 20090101, end: 20110107
  9. PRAVASTATIN [Suspect]
     Indication: DYSLIPIDAEMIA
     Dosage: 100 MG, DAILY, ORAL
     Route: 048
     Dates: start: 20090101, end: 20110107
  10. METFORMIN (METFORMIN) [Suspect]
     Indication: DIABETES MELLITUS
     Dosage: 500 MG, 3 IN 1 D, ORAL
     Route: 048
     Dates: start: 20090101, end: 20110107
  11. KLIPAL (CO-DAFALGAN) [Suspect]
     Indication: PAIN
     Dosage: 1 DOSAGE FORMS, DAILY, ORAL
     Route: 048
     Dates: start: 19900101, end: 20110107

REACTIONS (1)
  - SUDDEN DEATH [None]
